FAERS Safety Report 4318601-8 (Version None)
Quarter: 2004Q1

REPORT INFORMATION
  Report Type: 
  Country: None (occurrence: None)
  Receive Date: 20040316
  Receipt Date: 20040316
  Transmission Date: 20041129
  Serious: Yes (Other)
  Sender: FDA-Public Use
  Company Number: None

PATIENT
  Age: 28 Year
  Sex: Female
  Weight: 73.4827 kg

DRUGS (2)
  1. AMPICILLIN SODIUM [Suspect]
     Indication: PREMATURE LABOUR
     Dosage: 2 GM IV X 1
     Route: 042
     Dates: start: 20040220
  2. AMPICILLIN SODIUM [Suspect]
     Indication: PROPHYLAXIS
     Dosage: 2 GM IV X 1
     Route: 042
     Dates: start: 20040220

REACTIONS (3)
  - PRURITUS [None]
  - RASH [None]
  - URTICARIA [None]
